FAERS Safety Report 7796926-1 (Version None)
Quarter: 2011Q4

REPORT INFORMATION
  Report Type: 
  Country: None (occurrence: None)
  Receive Date: 20111003
  Receipt Date: 20110919
  Transmission Date: 20120403
  Serious: Yes (Other)
  Sender: FDA-Public Use
  Company Number: CRC-11-229

PATIENT
  Age: 51 Year
  Sex: Female

DRUGS (2)
  1. METOPROLOL TARTRATE [Suspect]
     Indication: HYPERTENSION
     Dosage: 100 MG 4X/DAY; ORAL
     Route: 048
     Dates: start: 20110718
  2. CLONIDINE [Concomitant]

REACTIONS (4)
  - CHEST PAIN [None]
  - PRODUCT SUBSTITUTION ISSUE [None]
  - HEADACHE [None]
  - BLOOD PRESSURE INCREASED [None]
